FAERS Safety Report 5896046-7 (Version None)
Quarter: 2008Q3

REPORT INFORMATION
  Report Type: 
  Country: None (occurrence: None)
  Receive Date: 20080924
  Receipt Date: 20080916
  Transmission Date: 20090109
  Serious: Yes (Other)
  Sender: FDA-Public Use
  Company Number: AT-GILEAD-2008-0018109

PATIENT
  Sex: Male

DRUGS (11)
  1. VIREAD [Suspect]
     Dates: start: 20080701, end: 20080828
  2. VIREAD [Suspect]
     Dates: start: 20080829
  3. EPIVIR [Concomitant]
     Dates: start: 20080701
  4. TMC-125 [Concomitant]
     Dates: start: 20080715
  5. PREZISTA [Concomitant]
     Dates: start: 20080715
  6. NORVIR [Concomitant]
     Dates: start: 20080701
  7. CIPRALEX [Concomitant]
     Dates: start: 20080715
  8. NEUROBION FORTE [Concomitant]
     Dates: start: 20080715
  9. BACTRIM DS [Concomitant]
     Dates: start: 20080725
  10. DIFLUCAN [Concomitant]
     Dates: start: 20080715
  11. NEXIUM [Concomitant]
     Dates: start: 20080725

REACTIONS (3)
  - HYDRONEPHROSIS [None]
  - KIDNEY ENLARGEMENT [None]
  - RENAL DISORDER [None]
